FAERS Safety Report 8945489 (Version 1)
Quarter: 2012Q4

REPORT INFORMATION
  Report Type: 
  Country: US (occurrence: US)
  Receive Date: 20121205
  Receipt Date: 20121205
  Transmission Date: 20130627
  Serious: No
  Sender: FDA-Public Use
  Company Number: US-009507513-1212USA001091

PATIENT
  Sex: Female

DRUGS (2)
  1. DULERA [Suspect]
     Indication: ASTHMA
     Dosage: 200 mcg/ 5 mcg
  2. SYMBICORT [Concomitant]
     Dosage: UNK
     Dates: end: 201211

REACTIONS (8)
  - Alopecia [Unknown]
  - Dizziness [Unknown]
  - Asthenia [Unknown]
  - Contusion [Unknown]
  - Muscular weakness [Unknown]
  - Fall [Unknown]
  - Swelling face [Unknown]
  - Fatigue [Unknown]
